FAERS Safety Report 5944589-X (Version None)
Quarter: 2008Q4

REPORT INFORMATION
  Report Type: 
  Country: None (occurrence: None)
  Receive Date: 20081107
  Receipt Date: 20081028
  Transmission Date: 20090506
  Serious: Yes (Hospitalization)
  Sender: FDA-Public Use
  Company Number: US-BAXTER-2008BH011322

PATIENT
  Age: 43 Year
  Sex: Female
  Weight: 70 kg

DRUGS (8)
  1. CYCLOPHOSPHAMIDE [Suspect]
     Indication: BREAST CANCER
     Route: 042
     Dates: start: 20070823, end: 20071004
  2. PACLITAXEL [Suspect]
     Indication: BREAST CANCER
     Route: 042
     Dates: start: 20071018, end: 20071214
  3. CAPECITABINE [Suspect]
     Indication: BREAST CANCER
     Route: 048
     Dates: start: 20071018, end: 20071214
  4. EPIRUBICIN [Suspect]
     Indication: BREAST CANCER
     Route: 042
     Dates: start: 20070823, end: 20071004
  5. ARANESP [Concomitant]
     Route: 042
     Dates: start: 20070823, end: 20071130
  6. TROPISETRON [Concomitant]
     Route: 042
     Dates: start: 20071018, end: 20071130
  7. FENISTIL [Concomitant]
     Route: 042
     Dates: start: 20071018, end: 20071130
  8. RANITIDINE [Concomitant]
     Route: 042
     Dates: start: 20071018, end: 20071130

REACTIONS (3)
  - ABSCESS [None]
  - CELLULITIS [None]
  - PARONYCHIA [None]
